FAERS Safety Report 8513335-8 (Version None)
Quarter: 2012Q3

REPORT INFORMATION
  Report Type: 
  Country: None (occurrence: None)
  Receive Date: 20120716
  Receipt Date: 20120710
  Transmission Date: 20120928
  Serious: Yes (Other)
  Sender: FDA-Public Use
  Company Number: PHEH2012US013553

PATIENT
  Sex: Female

DRUGS (3)
  1. LAMISIL [Suspect]
     Indication: NAIL INFECTION
     Dosage: 250 MG, QD
     Route: 048
  2. PROZAC [Concomitant]
     Indication: ANTIDEPRESSANT THERAPY
     Dosage: 20 MG, QD
     Route: 048
  3. VIVELLE-DOT [Concomitant]
     Indication: HORMONE REPLACEMENT THERAPY
     Dosage: 0.1 MG, TWICE A WEEK
     Route: 062

REACTIONS (3)
  - LIMB INJURY [None]
  - LOCALISED INFECTION [None]
  - WOUND SECRETION [None]
